FAERS Safety Report 6301782-4 (Version None)
Quarter: 2009Q3

REPORT INFORMATION
  Report Type: 
  Country: None (occurrence: None)
  Receive Date: 20090805
  Receipt Date: 20090721
  Transmission Date: 20100115
  Serious: Yes (Other)
  Sender: FDA-Public Use
  Company Number: DSM-2009-01020

PATIENT
  Age: 72 Year
  Weight: 70 kg

DRUGS (5)
  1. OLMESARTAN MEDOXOMIL [Suspect]
     Indication: HYPERTENSION
     Dosage: ORAL
     Route: 048
     Dates: start: 20090528, end: 20090530
  2. ALISKIREN (RENIN-ANGIOTENSIN SYSTEM, AGENTS ACTING ON) (150 MILLIGRAM) [Concomitant]
  3. INDAPAMIDE (INDAPAMIDE) (15 MILLIGRAM) (INDAPAMIDE) [Concomitant]
  4. PARACETAMOL (PARACETAMOL) [Concomitant]
  5. SULPHASALAZINE (SULFASALAZINE) (500 MILLIGRAM) (SULFASALAZINE) [Concomitant]

REACTIONS (3)
  - HEADACHE [None]
  - MALAISE [None]
  - VISION BLURRED [None]
